FAERS Safety Report 6159518-6 (Version None)
Quarter: 2009Q2

REPORT INFORMATION
  Report Type: 
  Country: None (occurrence: None)
  Receive Date: 20090420
  Receipt Date: 20080919
  Transmission Date: 20091009
  Serious: No
  Sender: FDA-Public Use
  Company Number: US-ABBOTT-08P-163-0477151-00

PATIENT
  Sex: Female
  Weight: 62.652 kg

DRUGS (3)
  1. LUPRON DEPOT-PED [Suspect]
     Indication: UTERINE LEIOMYOMA
     Dosage: PED DOSING
     Route: 030
     Dates: start: 20080919, end: 20080919
  2. LUPRON DEPOT-PED [Suspect]
     Indication: MENORRHAGIA
  3. PANTOPRAZOLE SODIUM [Concomitant]
     Indication: GASTROOESOPHAGEAL REFLUX DISEASE
     Route: 048

REACTIONS (1)
  - OVERDOSE [None]
